FAERS Safety Report 12110243 (Version 4)
Quarter: 2016Q3

REPORT INFORMATION
  Report Type: Report from Study
  Country: US (occurrence: US)
  Receive Date: 20160224
  Receipt Date: 20160830
  Transmission Date: 20161109
  Serious: Yes (Hospitalization, Other)
  Sender: FDA-Public Use
  Company Number: US-ACTELION-A-US2015-112762

PATIENT
  Age: 49 Year
  Sex: Male

DRUGS (1)
  1. OPSUMIT [Suspect]
     Active Substance: MACITENTAN
     Indication: PULMONARY ARTERIAL HYPERTENSION
     Dosage: 10 MG, QD
     Route: 048
     Dates: start: 20141029

REACTIONS (9)
  - General physical health deterioration [Not Recovered/Not Resolved]
  - Cardiac operation [Unknown]
  - Radiation pericarditis [Unknown]
  - Pericardial excision [Unknown]
  - Cardiac disorder [Unknown]
  - Syncope [Unknown]
  - Heart rate increased [Recovering/Resolving]
  - Pericarditis constrictive [Unknown]
  - Dyspnoea [Unknown]

NARRATIVE: CASE EVENT DATE: 201501
